FAERS Safety Report 5779605-1 (Version None)
Quarter: 2008Q2

REPORT INFORMATION
  Report Type: 
  Country: None (occurrence: None)
  Receive Date: 20080619
  Receipt Date: 20070620
  Transmission Date: 20081010
  Serious: No
  Sender: FDA-Public Use
  Company Number: US-ASTRAZENECA-2007UW14786

PATIENT
  Age: 72 Year
  Sex: Female
  Weight: 65.8 kg

DRUGS (4)
  1. ATACAND HCT [Suspect]
     Indication: HYPERTENSION
     Dosage: 32/12 MG
     Route: 048
     Dates: start: 20050101
  2. COREG [Suspect]
     Route: 048
  3. ALTACE [Concomitant]
  4. CLONIDINE [Concomitant]

REACTIONS (3)
  - ALOPECIA [None]
  - BURNING SENSATION [None]
  - SKIN BURNING SENSATION [None]
